FAERS Safety Report 8471130-2 (Version None)
Quarter: 2012Q2

REPORT INFORMATION
  Report Type: 
  Country: None (occurrence: None)
  Receive Date: 20120621
  Receipt Date: 20120601
  Transmission Date: 20120825
  Serious: Yes (Hospitalization)
  Sender: FDA-Public Use
  Company Number: 20120352

PATIENT
  Age: 26 Year
  Sex: Female

DRUGS (1)
  1. VENOFER [Suspect]
     Indication: ANAEMIA
     Dosage: 20 MG/ML
     Dates: start: 20120328

REACTIONS (5)
  - DYSGEUSIA [None]
  - HEADACHE [None]
  - ABDOMINAL PAIN [None]
  - PRURITUS [None]
  - FATIGUE [None]
